FAERS Safety Report 8510078-1 (Version None)
Quarter: 2012Q3

REPORT INFORMATION
  Report Type: 
  Country: None (occurrence: None)
  Receive Date: 20120713
  Receipt Date: 20120705
  Transmission Date: 20120928
  Serious: Yes (Hospitalization, Other)
  Sender: FDA-Public Use
  Company Number: US-ASTRAZENECA-2009UW06936

PATIENT
  Age: 85 Year
  Sex: Male

DRUGS (13)
  1. XANAX [Concomitant]
     Dosage: PERCUTANEOUS ENDOSCOPIC GASTROSTOMY TUBE AT NIGHT
  2. MULTIVITAMIN WITH IRON AND FLUORIDE [Concomitant]
     Dosage: 1 TABLET,DAILY
  3. IBUPROFEN [Suspect]
     Route: 065
  4. CARAFATE [Concomitant]
     Dosage: ONE TO TWO TIMES A DAY
  5. SYNTHROID [Concomitant]
  6. NEXIUM [Suspect]
     Route: 048
     Dates: start: 20000101
  7. VITAMIN D WITH CALCIUM [Concomitant]
     Dosage: 1 TABLET PER TUBE TWICE A DAY
  8. WARFARIN SODIUM [Concomitant]
  9. THIAMINE HCL [Concomitant]
  10. COUMADIN [Suspect]
     Route: 065
  11. FOLIC ACID [Concomitant]
  12. PERCOCET [Concomitant]
     Dosage: 5/500, 1TO 2 TABLETS AS NEEDED AT EVERY BEDTIME
  13. LEVOTHYROXINE SODIUM [Concomitant]

REACTIONS (31)
  - OESOPHAGITIS ULCERATIVE [None]
  - THROAT CANCER [None]
  - HIATUS HERNIA [None]
  - OEDEMA PERIPHERAL [None]
  - FEEDING TUBE COMPLICATION [None]
  - PEPTIC ULCER [None]
  - COAGULOPATHY [None]
  - ANAEMIA [None]
  - DEEP VEIN THROMBOSIS [None]
  - DEHYDRATION [None]
  - HYPOTHYROIDISM [None]
  - DYSLIPIDAEMIA [None]
  - HAEMORRHOIDS [None]
  - PAIN [None]
  - SQUAMOUS CELL CARCINOMA OF SKIN [None]
  - HEAD AND NECK CANCER [None]
  - HYPOKALAEMIA [None]
  - ATELECTASIS [None]
  - COUGH [None]
  - HYPERTENSION [None]
  - FALL [None]
  - INJURY [None]
  - GASTROINTESTINAL ULCER HAEMORRHAGE [None]
  - PULMONARY EMBOLISM [None]
  - ATRIAL FIBRILLATION [None]
  - PROSTATE CANCER [None]
  - OESOPHAGEAL STENOSIS [None]
  - BARRETT'S OESOPHAGUS [None]
  - SEBORRHOEIC KERATOSIS [None]
  - DIARRHOEA [None]
  - FLATULENCE [None]
